FAERS Safety Report 25044976 (Version 6)
Quarter: 2025Q3

REPORT INFORMATION
  Report Type: Report from Study
  Country: US (occurrence: US)
  Receive Date: 20250306
  Receipt Date: 20250701
  Transmission Date: 20251021
  Serious: Yes (Other)
  Sender: SUNOVION
  Company Number: US-SUMITOMO PHARMA SWITZERLAND GMBH-2025SPA001493

PATIENT

DRUGS (1)
  1. ORGOVYX [Suspect]
     Active Substance: RELUGOLIX
     Indication: Prostate cancer
     Dosage: 120 MG, QD
     Route: 048
     Dates: start: 20250125

REACTIONS (11)
  - Conjunctival haemorrhage [Unknown]
  - Tension [Unknown]
  - Dyspnoea [Unknown]
  - Eye disorder [Unknown]
  - Frustration tolerance decreased [Unknown]
  - Apathy [Unknown]
  - Glycosylated haemoglobin abnormal [Unknown]
  - Anxiety [Unknown]
  - Vomiting [Unknown]
  - Nausea [Unknown]
  - Incorrect dose administered [Unknown]
